FAERS Safety Report 25347507 (Version 1)
Quarter: 2025Q2

REPORT INFORMATION
  Report Type: Report from Study
  Country: FR (occurrence: FR)
  Receive Date: 20250522
  Receipt Date: 20250522
  Transmission Date: 20250717
  Serious: Yes (Other)
  Sender: MYLAN
  Company Number: FR-MYLANLABS-2025M1042557

PATIENT

DRUGS (16)
  1. EMTRICITABINE\TENOFOVIR DISOPROXIL [Suspect]
     Active Substance: EMTRICITABINE\TENOFOVIR DISOPROXIL
     Indication: HIV-2 infection
     Dosage: UNK UNK, QD
  2. EMTRICITABINE\TENOFOVIR DISOPROXIL [Suspect]
     Active Substance: EMTRICITABINE\TENOFOVIR DISOPROXIL
     Indication: Multiple-drug resistance
  3. RALTEGRAVIR [Suspect]
     Active Substance: RALTEGRAVIR
     Indication: HIV-2 infection
     Dosage: 400 MILLIGRAM, BID
  4. RALTEGRAVIR [Suspect]
     Active Substance: RALTEGRAVIR
     Indication: Multiple-drug resistance
  5. IBALIZUMAB [Concomitant]
     Active Substance: IBALIZUMAB
     Indication: HIV-2 infection
  6. IBALIZUMAB [Concomitant]
     Active Substance: IBALIZUMAB
     Indication: Multiple-drug resistance
     Dosage: 800 MILLIGRAM, BIWEEKLY
  7. LAMIVUDINE\ZIDOVUDINE [Concomitant]
     Active Substance: LAMIVUDINE\ZIDOVUDINE
     Indication: HIV-2 infection
  8. LAMIVUDINE\ZIDOVUDINE [Concomitant]
     Active Substance: LAMIVUDINE\ZIDOVUDINE
     Indication: Multiple-drug resistance
  9. DOLUTEGRAVIR [Concomitant]
     Active Substance: DOLUTEGRAVIR
     Indication: HIV-2 infection
     Dosage: 50 MILLIGRAM, BID
  10. DOLUTEGRAVIR [Concomitant]
     Active Substance: DOLUTEGRAVIR
     Indication: Multiple-drug resistance
  11. ATAZANAVIR [Concomitant]
     Active Substance: ATAZANAVIR
     Indication: HIV-2 infection
     Dosage: 150 MILLIGRAM, QD
  12. ATAZANAVIR [Concomitant]
     Active Substance: ATAZANAVIR
     Indication: Multiple-drug resistance
  13. DARUNAVIR\RITONAVIR [Concomitant]
     Active Substance: DARUNAVIR\RITONAVIR
     Indication: HIV-2 infection
     Dosage: UNK, BID
  14. DARUNAVIR\RITONAVIR [Concomitant]
     Active Substance: DARUNAVIR\RITONAVIR
     Indication: Multiple-drug resistance
  15. FOSCARNET [Concomitant]
     Active Substance: FOSCARNET
     Indication: HIV-2 infection
     Dosage: 90 MILLIGRAM/KILOGRAM, BID, FOR 4WEEK
  16. FOSCARNET [Concomitant]
     Active Substance: FOSCARNET
     Indication: Multiple-drug resistance

REACTIONS (1)
  - Treatment failure [Unknown]
